FAERS Safety Report 8459406-6 (Version None)
Quarter: 2012Q2

REPORT INFORMATION
  Report Type: 
  Country: None (occurrence: None)
  Receive Date: 20120622
  Receipt Date: 20120613
  Transmission Date: 20120825
  Serious: Yes (Other)
  Sender: FDA-Public Use
  Company Number: IL-JNJFOC-20120608272

PATIENT

DRUGS (1)
  1. PALIPERIDONE [Suspect]
     Indication: PRODUCT USED FOR UNKNOWN INDICATION
     Route: 030

REACTIONS (8)
  - DELUSION [None]
  - DYSGRAPHIA [None]
  - STRESS [None]
  - AMNESIA [None]
  - LIBIDO DECREASED [None]
  - MENTAL IMPAIRMENT [None]
  - SHOCK [None]
  - EXPRESSIVE LANGUAGE DISORDER [None]
